FAERS Safety Report 6753370-3 (Version None)
Quarter: 2010Q2

REPORT INFORMATION
  Report Type: 
  Country: None (occurrence: None)
  Receive Date: 20100603
  Receipt Date: 20100525
  Transmission Date: 20101027
  Serious: Yes (Other)
  Sender: FDA-Public Use
  Company Number: ES-ASTRAZENECA-2010SE23726

PATIENT
  Age: 43 Year
  Sex: Male

DRUGS (1)
  1. CRESTOR [Suspect]
     Indication: HYPERCHOLESTEROLAEMIA
     Route: 048
     Dates: start: 20091103, end: 20091105

REACTIONS (4)
  - HEADACHE [None]
  - INSOMNIA [None]
  - MUSCLE CONTRACTIONS INVOLUNTARY [None]
  - MYALGIA [None]
